FAERS Safety Report 7464269-1 (Version None)
Quarter: 2011Q2

REPORT INFORMATION
  Report Type: 
  Country: None (occurrence: None)
  Receive Date: 20110508
  Receipt Date: 20110427
  Transmission Date: 20111010
  Serious: Yes (Death, Hospitalization)
  Sender: FDA-Public Use
  Company Number: FR-BRISTOL-MYERS SQUIBB COMPANY-15656341

PATIENT
  Age: 83 Year
  Sex: Male

DRUGS (2)
  1. GLICLAZIDE [Suspect]
     Indication: TYPE 2 DIABETES MELLITUS
     Dosage: TABLET
     Route: 048
     Dates: start: 20101209, end: 20101213
  2. GLUCOPHAGE [Suspect]
     Indication: TYPE 2 DIABETES MELLITUS
     Route: 048
     Dates: start: 20101208, end: 20101213

REACTIONS (3)
  - RENAL FAILURE ACUTE [None]
  - HYPOGLYCAEMIA [None]
  - HYPOGLYCAEMIC ENCEPHALOPATHY [None]
